FAERS Safety Report 5012657-5 (Version None)
Quarter: 2006Q2

REPORT INFORMATION
  Report Type: 
  Country: None (occurrence: None)
  Receive Date: 20060411
  Receipt Date: 20060208
  Transmission Date: 20061013
  Serious: Yes (Other)
  Sender: FDA-Public Use
  Company Number: 435537

PATIENT
  Sex: Female

DRUGS (1)
  1. FUZEON [Suspect]

REACTIONS (2)
  - ACCIDENTAL EXPOSURE [None]
  - NO ADVERSE EFFECT [None]
